FAERS Safety Report 8322776-3 (Version None)
Quarter: 2012Q2

REPORT INFORMATION
  Report Type: 
  Country: None (occurrence: None)
  Receive Date: 20120430
  Receipt Date: 20120424
  Transmission Date: 20120825
  Serious: Yes (Hospitalization)
  Sender: FDA-Public Use
  Company Number: US-B.I. PHARMACEUTICALS,INC./RIDGEFIELD-2012-BP-09373BP

PATIENT
  Sex: Male

DRUGS (12)
  1. AGGRENOX [Suspect]
     Indication: PROPHYLAXIS
     Route: 048
     Dates: start: 20090814
  2. FUROSEMIDE [Concomitant]
     Dosage: 20 MG
     Route: 048
  3. NOVOLOG REGULAR INSULIN [Concomitant]
     Indication: DIABETES MELLITUS
     Route: 058
  4. CRESTOR [Concomitant]
     Indication: BLOOD CHOLESTEROL INCREASED
     Dosage: 20 MG
     Route: 048
  5. LYRICA [Concomitant]
     Indication: NEUROPATHY PERIPHERAL
     Route: 048
     Dates: start: 20070101
  6. ASPIRIN [Concomitant]
     Indication: PROPHYLAXIS
     Dosage: 975 MG
     Route: 048
  7. LISINOPRIL [Concomitant]
     Indication: HYPERTENSION
     Dosage: 1.25 MG
     Route: 048
  8. METOPROLOL TARTRATE [Concomitant]
     Indication: HYPERTENSION
     Dosage: 2.5 MG
     Route: 048
  9. PRILOSEC [Concomitant]
     Route: 048
  10. ACCUPRIL [Concomitant]
     Indication: HYPERTENSION
     Dosage: 5 MG
     Route: 048
  11. NPH INSULIN [Concomitant]
     Indication: DIABETES MELLITUS
     Dosage: 68 U
     Route: 058
  12. ALLERGY MEDICATION [Concomitant]

REACTIONS (1)
  - CORONARY ARTERY OCCLUSION [None]
